FAERS Safety Report 26072434 (Version 1)
Quarter: 2025Q4

REPORT INFORMATION
  Report Type: Spontaneous
  Country: US (occurrence: US)
  Receive Date: 20251120
  Receipt Date: 20251120
  Transmission Date: 20260118
  Serious: Yes (Other)
  Sender: NOVO NORDISK
  Company Number: US-NOVOPROD-1535302

PATIENT
  Age: 19 Year
  Sex: Male
  Weight: 81.179 kg

DRUGS (2)
  1. FIASP [Suspect]
     Active Substance: INSULIN ASPART
     Dosage: UNK
     Route: 058
  2. FIASP [Suspect]
     Active Substance: INSULIN ASPART
     Indication: Type 1 diabetes mellitus
     Dosage: UNK
     Route: 058

REACTIONS (4)
  - Blood glucose increased [Recovered/Resolved]
  - Liquid product physical issue [Unknown]
  - Pollakiuria [Unknown]
  - Irritability [Unknown]

NARRATIVE: CASE EVENT DATE: 20250901
